FAERS Safety Report 9553909 (Version 1)
Quarter: 2013Q3

REPORT INFORMATION
  Report Type: Spontaneous
  Country: US (occurrence: None)
  Receive Date: 20130821
  Receipt Date: 20130821
  Transmission Date: 20140515
  Serious: Yes (Other)
  Sender: FDA-Public Use
  Company Number: 1000046627

PATIENT
  Age: 61 Year
  Sex: Female

DRUGS (6)
  1. TUDORZA PRESSAIR [Suspect]
     Indication: CHRONIC OBSTRUCTIVE PULMONARY DISEASE
     Route: 055
     Dates: start: 201305, end: 20130608
  2. TUDORZA PRESSAIR [Suspect]
     Indication: CHRONIC OBSTRUCTIVE PULMONARY DISEASE
     Dosage: 800 MCG (400 MCG, 2 IN 1 D), RESPIRATORY (INHALATION)
     Route: 055
     Dates: start: 20130609, end: 20130701
  3. TUDORZA PRESSAIR (ACLIDINIUM BROMIDE) (400 MICROGRAM, POWDER) [Suspect]
     Indication: CHRONIC OBSTRUCTIVE PULMONARY DISEASE
     Dosage: 800 MCG (400 MCG, 2 IN 1 D), RESPIRATORY (INHALATION)
     Route: 055
     Dates: start: 20130709
  4. SYNTHROID (LEVOTHYROXINE SODIUM) (LEVOTHYROXINE SODIUM) [Concomitant]
  5. LESCOL (FLUVASTATIN SODIUM) (FLUVASTATIN SODIUM) [Concomitant]
  6. ALEVE (NAPROXEN SODIUM) (NAPROXEN SODIUM) [Concomitant]

REACTIONS (3)
  - Fatigue [None]
  - Sinus congestion [None]
  - Nasal congestion [None]
